FAERS Safety Report 23976334 (Version 1)
Quarter: 2024Q2

REPORT INFORMATION
  Report Type: Spontaneous
  Country: US (occurrence: None)
  Receive Date: 20240613
  Receipt Date: 20240613
  Transmission Date: 20240715
  Serious: Yes (Other)
  Sender: FDA-Public Use
  Company Number: None

PATIENT
  Age: 30 Year
  Sex: Male
  Weight: 76.2 kg

DRUGS (4)
  1. CHLORPROMAZINE [Suspect]
     Active Substance: CHLORPROMAZINE
     Indication: Psychotic disorder
     Dosage: FREQUENCY : TWICE A DAY;?
     Route: 048
  2. DIVALPROEX SODIUM [Concomitant]
     Active Substance: DIVALPROEX SODIUM
  3. LORAZEPAM [Concomitant]
     Active Substance: LORAZEPAM
  4. QUETIAPINE [Concomitant]
     Active Substance: QUETIAPINE

REACTIONS (2)
  - Delusion [None]
  - Musculoskeletal stiffness [None]

NARRATIVE: CASE EVENT DATE: 20240415
